FAERS Safety Report 11254428 (Version 1)
Quarter: 2015Q3

REPORT INFORMATION
  Report Type: Spontaneous
  Country: US (occurrence: None)
  Receive Date: 20150708
  Receipt Date: 20150708
  Transmission Date: 20151125
  Serious: No
  Sender: FDA-Public Use
  Company Number: None

PATIENT
  Age: 35 Year
  Sex: Female

DRUGS (1)
  1. APLISOL [Suspect]
     Active Substance: TUBERCULIN PURIFIED PROTEIN DERIVATIVE
     Dosage: INTRADERMAL-ID RIGHT ARM
     Route: 023
     Dates: start: 20150506

REACTIONS (3)
  - Peripheral swelling [None]
  - Pain in extremity [None]
  - Joint swelling [None]

NARRATIVE: CASE EVENT DATE: 20150506
